FAERS Safety Report 17576896 (Version 1)
Quarter: 2020Q1

REPORT INFORMATION
  Report Type: Spontaneous
  Country: FR (occurrence: FR)
  Receive Date: 20200324
  Receipt Date: 20200324
  Transmission Date: 20200409
  Serious: Yes (Hospitalization, Other)
  Sender: FDA-Public Use
  Company Number: FR-MYLANLABS-2020M1029511

PATIENT
  Age: 89 Year

DRUGS (1)
  1. RAMIPRIL. [Suspect]
     Active Substance: RAMIPRIL
     Indication: PRODUCT USED FOR UNKNOWN INDICATION
     Dosage: UNK
     Route: 065

REACTIONS (8)
  - Dyspnoea [Unknown]
  - Cardiac failure [Unknown]
  - Angioedema [Unknown]
  - Face oedema [Unknown]
  - Hemiparesis [Unknown]
  - Palatal oedema [Unknown]
  - Cough [Unknown]
  - Cerebrovascular accident [Unknown]
